FAERS Safety Report 8816042 (Version 1)
Quarter: 2012Q4

REPORT INFORMATION
  Report Type: 
  Country: BE (occurrence: BE)
  Receive Date: 20120928
  Receipt Date: 20120928
  Transmission Date: 20130627
  Serious: Yes (Hospitalization)
  Sender: FDA-Public Use
  Company Number: BE-PFIZER INC-2012235583

PATIENT
  Sex: Female

DRUGS (3)
  1. TORISEL [Suspect]
     Indication: ABDOMINAL NEOPLASM
     Dosage: 525 mg, single (3 x 175 mg)
     Dates: start: 201206
  2. TORISEL [Suspect]
     Indication: MANTLE CELL LYMPHOMA
     Dosage: 75 mg, weekly
  3. TORISEL [Suspect]
     Dosage: 50 mg, weekly
     Dates: start: 201208

REACTIONS (3)
  - Rectal haemorrhage [Unknown]
  - Asthenia [Unknown]
  - Mucosal infection [Unknown]
